FAERS Safety Report 7280823-4 (Version None)
Quarter: 2011Q1

REPORT INFORMATION
  Report Type: 
  Country: None (occurrence: None)
  Receive Date: 20110125
  Receipt Date: 20110118
  Transmission Date: 20110831
  Serious: Yes (Other)
  Sender: FDA-Public Use
  Company Number: 70624

PATIENT
  Age: 16 Year
  Sex: Female
  Weight: 60.782 kg

DRUGS (3)
  1. OXY CLINICAL CLEARING TREATMENT 5% BENZOYL PEROXIDE [Suspect]
     Indication: ACNE
     Dosage: 1 X/2 NIGHTS, TOPICAL
     Route: 061
     Dates: start: 20110115, end: 20110116
  2. OXY CLINICAL ADVANCED FACE WASH 2% SALICYLIC ACID [Suspect]
     Indication: ACNE
     Dosage: 1 X/2 NIGHTS, TOPICAL
     Route: 061
     Dates: start: 20110115, end: 20110116
  3. OXY CLINICAL HYDRATING THERAPY 0.5% SALICYLIC ACID [Suspect]
     Indication: ACNE
     Dosage: 1 X/2 NIGHTS
     Dates: start: 20110115, end: 20110116

REACTIONS (6)
  - CHEMICAL INJURY [None]
  - BURNS FIRST DEGREE [None]
  - HYPERSENSITIVITY [None]
  - ERYTHEMA [None]
  - BURNING SENSATION [None]
  - CONTUSION [None]
